FAERS Safety Report 14179997 (Version 1)
Quarter: 2017Q4

REPORT INFORMATION
  Report Type: Spontaneous
  Country: JP (occurrence: JP)
  Receive Date: 20171110
  Receipt Date: 20171110
  Transmission Date: 20180321
  Serious: Yes (Hospitalization)
  Sender: FDA-Public Use
  Company Number: JP-PFIZER INC-2017418493

PATIENT
  Age: 48 Year
  Sex: Female
  Weight: 49 kg

DRUGS (1)
  1. LYRICA [Suspect]
     Active Substance: PREGABALIN
     Indication: SUICIDE ATTEMPT
     Dosage: 60 TABLETS, UNK
     Route: 048
     Dates: start: 20170927, end: 20170927

REACTIONS (8)
  - Suicide attempt [Recovered/Resolved]
  - Gait disturbance [Recovering/Resolving]
  - Somnolence [Unknown]
  - Hypoaesthesia [Unknown]
  - Headache [Recovering/Resolving]
  - Intentional overdose [Recovered/Resolved]
  - Dizziness [Recovering/Resolving]
  - Movement disorder [Not Recovered/Not Resolved]

NARRATIVE: CASE EVENT DATE: 20170927
